FAERS Safety Report 13596392 (Version 1)
Quarter: 2017Q2

REPORT INFORMATION
  Report Type: Spontaneous
  Country: US (occurrence: US)
  Receive Date: 20170530
  Receipt Date: 20170530
  Transmission Date: 20170830
  Serious: Yes (Other)
  Sender: FDA-Public Use
  Company Number: None

PATIENT
  Age: 68 Year
  Sex: Female
  Weight: 108 kg

DRUGS (9)
  1. VITAMIN B12 [Concomitant]
     Active Substance: CYANOCOBALAMIN
  2. BAYER ASPIRIN [Concomitant]
     Active Substance: ASPIRIN
  3. CITRICAL +D3 [Concomitant]
  4. METOPEOLOL ER SUCCINATE [Concomitant]
  5. AMLODIPINE BOSYLATE [Concomitant]
  6. RANITIDINE. [Concomitant]
     Active Substance: RANITIDINE
  7. POTASSIUM CHLORIDE ER [Concomitant]
     Active Substance: POTASSIUM CHLORIDE
  8. LEVOFLOXIN [Suspect]
     Active Substance: LEVOFLOXACIN
     Indication: BRONCHITIS
     Route: 048
     Dates: start: 20170512, end: 20170517
  9. HYDROCHLOROTHIAZIDE. [Concomitant]
     Active Substance: HYDROCHLOROTHIAZIDE

REACTIONS (5)
  - Pain [None]
  - Musculoskeletal disorder [None]
  - Gait disturbance [None]
  - Swelling [None]
  - Tendon disorder [None]

NARRATIVE: CASE EVENT DATE: 20170516
